FAERS Safety Report 13447858 (Version 1)
Quarter: 2017Q2

REPORT INFORMATION
  Report Type: Spontaneous
  Country: US (occurrence: US)
  Receive Date: 20170417
  Receipt Date: 20170417
  Transmission Date: 20170830
  Serious: No
  Sender: FDA-Public Use
  Company Number: None

PATIENT
  Age: 68 Year
  Sex: Female
  Weight: 67.19 kg

DRUGS (1)
  1. LISINOPRIL 10MG [Suspect]
     Active Substance: LISINOPRIL
     Indication: HYPERTENSION
     Route: 048
     Dates: start: 20170320, end: 20170322

REACTIONS (3)
  - Swollen tongue [None]
  - Angioedema [None]
  - Tonsillar hypertrophy [None]

NARRATIVE: CASE EVENT DATE: 20170320
